FAERS Safety Report 22162477 (Version 1)
Quarter: 2023Q1

REPORT INFORMATION
  Report Type: Spontaneous
  Country: IN (occurrence: IN)
  Receive Date: 20230331
  Receipt Date: 20230331
  Transmission Date: 20230418
  Serious: Yes (Other)
  Sender: FDA-Public Use
  Company Number: IN-JNJFOC-20230368182

PATIENT

DRUGS (1)
  1. EVICEL [Suspect]
     Active Substance: FIBRINOGEN HUMAN\THROMBIN HUMAN
     Indication: Fistula
     Route: 065

REACTIONS (8)
  - Anal haemorrhage [Unknown]
  - Anal fistula [Unknown]
  - Perforation [Unknown]
  - Infection [Unknown]
  - Therapeutic product ineffective [Unknown]
  - Proctalgia [Unknown]
  - Off label use [Unknown]
  - Drug ineffective [Unknown]
